FAERS Safety Report 18435154 (Version 7)
Quarter: 2021Q2

REPORT INFORMATION
  Report Type: Report from Study
  Country: JP (occurrence: JP)
  Receive Date: 20201028
  Receipt Date: 20210524
  Transmission Date: 20210717
  Serious: Yes (Hospitalization, Other)
  Sender: FDA-Public Use
  Company Number: NVSJ2020JP010937

PATIENT
  Age: 64 Year
  Sex: Female

DRUGS (60)
  1. REVOLADE TAB [Suspect]
     Active Substance: ELTROMBOPAG OLAMINE
     Dosage: 50 MG
     Route: 048
     Dates: start: 20191016, end: 20191022
  2. CONCENTRATED RED CELLS [Concomitant]
     Active Substance: HUMAN RED BLOOD CELL
     Dosage: 80 ML
     Route: 065
     Dates: start: 20190823, end: 20190919
  3. CONCENTRATED RED CELLS [Concomitant]
     Active Substance: HUMAN RED BLOOD CELL
     Dosage: 40 ML
     Route: 065
     Dates: start: 20200306, end: 20200402
  4. PLATELETS [Concomitant]
     Active Substance: HUMAN PLATELET, ALLOGENIC
     Dosage: 400 ML
     Route: 065
     Dates: start: 20190531, end: 20190627
  5. PLATELETS [Concomitant]
     Active Substance: HUMAN PLATELET, ALLOGENIC
     Dosage: 800 ML
     Route: 065
     Dates: start: 20190823, end: 20190919
  6. REVOLADE TAB [Suspect]
     Active Substance: ELTROMBOPAG OLAMINE
     Indication: APLASTIC ANAEMIA
     Dosage: 12.5 MG
     Route: 048
     Dates: start: 20190531, end: 20190604
  7. NEORAL [Concomitant]
     Active Substance: CYCLOSPORINE
     Dosage: 100 MG
     Route: 048
     Dates: start: 20190218, end: 20190316
  8. CONCENTRATED RED CELLS [Concomitant]
     Active Substance: HUMAN RED BLOOD CELL
     Dosage: 80 ML
     Route: 065
     Dates: start: 20200403, end: 20200430
  9. PLATELETS [Concomitant]
     Active Substance: HUMAN PLATELET, ALLOGENIC
     Indication: PRODUCT USED FOR UNKNOWN INDICATION
     Dosage: 200 ML
     Route: 065
     Dates: start: 20190405, end: 20190502
  10. REVOLADE TAB [Suspect]
     Active Substance: ELTROMBOPAG OLAMINE
     Dosage: 25 MG
     Route: 048
     Dates: start: 20191023, end: 20191119
  11. LEVOFLOXACIN MESYLATE [Suspect]
     Active Substance: LEVOFLOXACIN MESYLATE
     Indication: APLASTIC ANAEMIA
     Dosage: 500 MG
     Route: 048
     Dates: start: 20190523, end: 20190529
  12. THYMOGLOBULINE [Concomitant]
     Active Substance: LAPINE T-LYMPHOCYTE IMMUNE GLOBULIN
     Indication: APLASTIC ANAEMIA
     Dosage: 150 MG
     Route: 065
     Dates: start: 20190813, end: 20190817
  13. CONCENTRATED RED CELLS [Concomitant]
     Active Substance: HUMAN RED BLOOD CELL
     Dosage: 240 ML
     Route: 065
     Dates: start: 20191018, end: 20191114
  14. PLATELETS [Concomitant]
     Active Substance: HUMAN PLATELET, ALLOGENIC
     Dosage: 600 ML
     Route: 065
     Dates: start: 20200207, end: 20200305
  15. REVOLADE TAB [Suspect]
     Active Substance: ELTROMBOPAG OLAMINE
     Dosage: 12.5 MG
     Route: 048
     Dates: start: 20190926, end: 20191001
  16. REVOLADE TAB [Suspect]
     Active Substance: ELTROMBOPAG OLAMINE
     Dosage: 25 MG
     Route: 048
     Dates: start: 20191002, end: 20191008
  17. NEORAL [Concomitant]
     Active Substance: CYCLOSPORINE
     Dosage: 300 MG
     Route: 048
     Dates: start: 20190813, end: 20190817
  18. ZOLPIDEM [Concomitant]
     Active Substance: ZOLPIDEM TARTRATE
     Indication: PRODUCT USED FOR UNKNOWN INDICATION
     Route: 065
  19. NEORAL [Concomitant]
     Active Substance: CYCLOSPORINE
     Dosage: 80 MG
     Route: 048
     Dates: start: 20191002, end: 20191018
  20. CONCENTRATED RED CELLS [Concomitant]
     Active Substance: HUMAN RED BLOOD CELL
     Indication: PRODUCT USED FOR UNKNOWN INDICATION
     Dosage: 40 ML
     Route: 065
     Dates: start: 20190628, end: 20190725
  21. CONCENTRATED RED CELLS [Concomitant]
     Active Substance: HUMAN RED BLOOD CELL
     Dosage: 120 ML
     Route: 065
     Dates: start: 20200207, end: 20200305
  22. EBRANTIL [Concomitant]
     Active Substance: URAPIDIL
     Indication: PRODUCT USED FOR UNKNOWN INDICATION
     Route: 065
  23. BESACOLIN [Concomitant]
     Active Substance: BETHANECHOL CHLORIDE
     Indication: PRODUCT USED FOR UNKNOWN INDICATION
     Route: 065
  24. ACELIO [Suspect]
     Active Substance: ACETAMINOPHEN
     Indication: APLASTIC ANAEMIA
     Dosage: 2400 MG
     Route: 065
     Dates: start: 20191121, end: 20191201
  25. NEORAL [Concomitant]
     Active Substance: CYCLOSPORINE
     Indication: APLASTIC ANAEMIA
     Dosage: 120 MG
     Route: 048
     Dates: start: 20190210, end: 20190217
  26. NEORAL [Concomitant]
     Active Substance: CYCLOSPORINE
     Dosage: 150 MG
     Route: 048
     Dates: start: 20190913, end: 20190919
  27. PREDNISOLONE. [Concomitant]
     Active Substance: PREDNISOLONE
     Dosage: 25 MG
     Route: 048
     Dates: start: 20190820, end: 20190901
  28. CONCENTRATED RED CELLS [Concomitant]
     Active Substance: HUMAN RED BLOOD CELL
     Dosage: 120 ML
     Route: 065
     Dates: start: 20191115, end: 20191214
  29. CONCENTRATED RED CELLS [Concomitant]
     Active Substance: HUMAN RED BLOOD CELL
     Dosage: 80 ML
     Route: 065
     Dates: start: 20191215, end: 20200109
  30. CONCENTRATED RED CELLS [Concomitant]
     Active Substance: HUMAN RED BLOOD CELL
     Dosage: 120 ML
     Route: 065
     Dates: start: 20200110, end: 20200206
  31. ALENDRONATE [Concomitant]
     Active Substance: ALENDRONATE SODIUM
     Indication: PRODUCT USED FOR UNKNOWN INDICATION
     Route: 065
  32. NEORAL [Concomitant]
     Active Substance: CYCLOSPORINE
     Dosage: 180 MG
     Route: 048
     Dates: start: 20190920, end: 20191001
  33. NEORAL [Concomitant]
     Active Substance: CYCLOSPORINE
     Dosage: 60 MG
     Route: 048
     Dates: start: 20191019, end: 20200209
  34. NEORAL [Concomitant]
     Active Substance: CYCLOSPORINE
     Dosage: 120 MG
     Route: 048
     Dates: start: 20200210, end: 20200217
  35. NEORAL [Concomitant]
     Active Substance: CYCLOSPORINE
     Dosage: 100 MG
     Route: 048
     Dates: start: 20200218, end: 20200316
  36. PREDNISOLONE. [Concomitant]
     Active Substance: PREDNISOLONE
     Dosage: 50 MG
     Route: 048
     Dates: start: 20190818, end: 20190818
  37. CONCENTRATED RED CELLS [Concomitant]
     Active Substance: HUMAN RED BLOOD CELL
     Dosage: 120 ML
     Route: 065
     Dates: start: 20190726, end: 20190822
  38. CONCENTRATED RED CELLS [Concomitant]
     Active Substance: HUMAN RED BLOOD CELL
     Dosage: 320 ML
     Route: 065
     Dates: start: 20190920, end: 20191017
  39. PLATELETS [Concomitant]
     Active Substance: HUMAN PLATELET, ALLOGENIC
     Dosage: 200 ML
     Route: 065
     Dates: start: 20190503, end: 20190530
  40. PLATELETS [Concomitant]
     Active Substance: HUMAN PLATELET, ALLOGENIC
     Dosage: 1000 ML
     Route: 065
     Dates: start: 20190628, end: 20190725
  41. PLATELETS [Concomitant]
     Active Substance: HUMAN PLATELET, ALLOGENIC
     Dosage: 1800 ML
     Route: 065
     Dates: start: 20190726, end: 20190822
  42. PLATELETS [Concomitant]
     Active Substance: HUMAN PLATELET, ALLOGENIC
     Dosage: 2600 ML
     Route: 065
     Dates: start: 20190920, end: 20191017
  43. PLATELETS [Concomitant]
     Active Substance: HUMAN PLATELET, ALLOGENIC
     Dosage: 1000 ML
     Route: 065
     Dates: start: 20191018, end: 20191114
  44. PLATELETS [Concomitant]
     Active Substance: HUMAN PLATELET, ALLOGENIC
     Dosage: 2000 ML
     Route: 065
     Dates: start: 20191115, end: 20191214
  45. PLATELETS [Concomitant]
     Active Substance: HUMAN PLATELET, ALLOGENIC
     Dosage: 1400 ML
     Route: 065
     Dates: start: 20191215, end: 20200109
  46. PLATELETS [Concomitant]
     Active Substance: HUMAN PLATELET, ALLOGENIC
     Dosage: 400 ML
     Route: 065
     Dates: start: 20200306, end: 20200402
  47. JADENU [Concomitant]
     Active Substance: DEFERASIROX
     Indication: PRODUCT USED FOR UNKNOWN INDICATION
     Route: 065
  48. REVOLADE TAB [Suspect]
     Active Substance: ELTROMBOPAG OLAMINE
     Dosage: 37.5 MG
     Route: 048
     Dates: start: 20191009, end: 20191015
  49. REVOLADE TAB [Suspect]
     Active Substance: ELTROMBOPAG OLAMINE
     Dosage: 50 MG
     Route: 048
     Dates: start: 20191120, end: 20191126
  50. REVOLADE TAB [Suspect]
     Active Substance: ELTROMBOPAG OLAMINE
     Dosage: 62.5 MG
     Route: 048
     Dates: start: 20191127, end: 20191210
  51. REVOLADE TAB [Suspect]
     Active Substance: ELTROMBOPAG OLAMINE
     Dosage: 75 MG
     Route: 048
     Dates: start: 20191211, end: 20200116
  52. REVOLADE TAB [Suspect]
     Active Substance: ELTROMBOPAG OLAMINE
     Dosage: 100 MG
     Route: 048
     Dates: start: 20200117, end: 20200427
  53. LEVOFLOXACIN MESYLATE [Suspect]
     Active Substance: LEVOFLOXACIN MESYLATE
     Dosage: 500 MG
     Route: 048
     Dates: start: 20190616, end: 20190622
  54. LEVOFLOXACIN MESYLATE [Suspect]
     Active Substance: LEVOFLOXACIN MESYLATE
     Dosage: 500 MG
     Route: 048
     Dates: start: 20190909, end: 20190915
  55. NEORAL [Concomitant]
     Active Substance: CYCLOSPORINE
     Dosage: 200 MG
     Route: 048
     Dates: start: 20190818, end: 20190912
  56. PREDNISOLONE. [Concomitant]
     Active Substance: PREDNISOLONE
     Indication: APLASTIC ANAEMIA
     Dosage: 100 MG
     Route: 048
     Dates: start: 20190813, end: 20190817
  57. FILGRASTIM [Concomitant]
     Active Substance: FILGRASTIM
     Indication: APLASTIC ANAEMIA
     Dosage: 75 UG
     Route: 065
     Dates: start: 20190813, end: 20200117
  58. PLATELETS [Concomitant]
     Active Substance: HUMAN PLATELET, ALLOGENIC
     Dosage: 600 ML
     Route: 065
     Dates: start: 20200403, end: 20200430
  59. FAMOTIDINE. [Concomitant]
     Active Substance: FAMOTIDINE
     Indication: PRODUCT USED FOR UNKNOWN INDICATION
     Route: 065
  60. TEPRENONE [Concomitant]
     Active Substance: TEPRENONE
     Indication: PRODUCT USED FOR UNKNOWN INDICATION
     Route: 065

REACTIONS (5)
  - Haemoglobin decreased [Unknown]
  - Liver disorder [Recovering/Resolving]
  - Malaise [Recovering/Resolving]
  - Gamma-glutamyltransferase increased [Unknown]
  - White blood cell count decreased [Unknown]

NARRATIVE: CASE EVENT DATE: 20190604
